FAERS Safety Report 4975594-8 (Version None)
Quarter: 2006Q2

REPORT INFORMATION
  Report Type: 
  Country: None (occurrence: None)
  Receive Date: 20060411
  Receipt Date: 20060405
  Transmission Date: 20061013
  Serious: Yes (Hospitalization)
  Sender: FDA-Public Use
  Company Number: FRWYE533605APR06

PATIENT
  Age: 91 Year
  Sex: Female

DRUGS (6)
  1. EFFEXOR XR [Suspect]
     Dosage: 75 MG TOTAL DAILY, ORAL
     Route: 048
  2. BUFLOMEDIL HYDROCHLORIDE [Suspect]
     Dosage: 300 MG TOTAL DAILY, ORAL
     Route: 048
  3. CORDARONE [Suspect]
     Dosage: 200 MG 1X PER 1 DAY, ORAL
     Route: 048
     Dates: start: 20051215
  4. FUROSEMIDE [Suspect]
     Dosage: 1 DOSE 1X PER 1 DAY, ORAL
     Route: 048
  5. NISIS           (VALSARTAN, , 0) [Suspect]
     Dosage: 1 TABLET 1X PER 1 DAY, ORAL
     Route: 048
  6. PREVISCAN                        (FLUINDIONE, , 0) [Suspect]
     Dosage: 20 MG 1X PER 1 DAY,  ORAL
     Route: 048

REACTIONS (3)
  - AGITATION [None]
  - CONFUSIONAL STATE [None]
  - HYPOTHYROIDISM [None]
